FAERS Safety Report 6237002-9 (Version None)
Quarter: 2009Q2

REPORT INFORMATION
  Report Type: 
  Country: None (occurrence: None)
  Receive Date: 20090619
  Receipt Date: 20090317
  Transmission Date: 20091009
  Serious: No
  Sender: FDA-Public Use
  Company Number: US-ASTRAZENECA-2009UW07015

PATIENT
  Age: 68 Year
  Sex: Female
  Weight: 83 kg

DRUGS (7)
  1. SYMBICORT [Suspect]
     Indication: ASTHMA
     Dosage: 160/4.5 MCG 2 PUFFS IN AM AND 2 PUFFS IN PM
     Route: 055
     Dates: end: 20090101
  2. SYMBICORT [Suspect]
     Dosage: 160/4.5 MCG ONE PUFF IN AM AND ONE PUFF IN PM
     Route: 055
     Dates: start: 20090201
  3. PRILOSEC DELAYED RELEASE CAPSULES [Suspect]
     Indication: GASTROOESOPHAGEAL REFLUX DISEASE
     Route: 048
  4. SPIRIVA [Concomitant]
  5. AMOXICILLIN [Concomitant]
  6. ASMANEX TWISTHALER [Concomitant]
  7. ANTICHOLINERGIC DRUGS [Concomitant]

REACTIONS (11)
  - BENIGN NEOPLASM OF THYROID GLAND [None]
  - BLOOD CREATINE PHOSPHOKINASE INCREASED [None]
  - DYSPHONIA [None]
  - INSOMNIA [None]
  - LARYNGITIS [None]
  - LETHARGY [None]
  - MUSCLE SPASMS [None]
  - MUSCULAR WEAKNESS [None]
  - MUSCULOSKELETAL STIFFNESS [None]
  - MYALGIA [None]
  - SINUSITIS [None]
